FAERS Safety Report 4940207-8 (Version None)
Quarter: 2006Q1

REPORT INFORMATION
  Report Type: 
  Country: None (occurrence: None)
  Receive Date: 20060310
  Receipt Date: 20050909
  Transmission Date: 20060701
  Serious: Yes (Hospitalization)
  Sender: FDA-Public Use
  Company Number: FRWYE968412SEP05

PATIENT
  Sex: Male

DRUGS (5)
  1. ENBREL [Suspect]
     Indication: ANKYLOSING SPONDYLITIS
     Dosage: UNKNOWN
     Route: 058
     Dates: start: 20020101, end: 20050613
  2. ENBREL [Suspect]
     Dates: start: 20051026
  3. BUTAZOLIDIN [Concomitant]
     Dates: end: 20050613
  4. BUTAZOLIDIN [Concomitant]
     Dates: start: 20050101
  5. SULFASALAZINE [Concomitant]

REACTIONS (2)
  - CAT SCRATCH DISEASE [None]
  - SKIN INJURY [None]
